FAERS Safety Report 7063078-5 (Version None)
Quarter: 2010Q4

REPORT INFORMATION
  Report Type: 
  Country: None (occurrence: None)
  Receive Date: 20101026
  Receipt Date: 20100429
  Transmission Date: 20110411
  Serious: Yes (Other)
  Sender: FDA-Public Use
  Company Number: US-PFIZER INC-2010055076

PATIENT
  Sex: Male

DRUGS (2)
  1. LIPITOR [Suspect]
     Dosage: 20 MG, 2X/DAY
     Route: 048
     Dates: start: 20100401
  2. XANAX [Concomitant]

REACTIONS (2)
  - ARTHRALGIA [None]
  - PAIN [None]
